FAERS Safety Report 21662198 (Version 1)
Quarter: 2022Q4

REPORT INFORMATION
  Report Type: Spontaneous
  Country: US (occurrence: None)
  Receive Date: 20221129
  Receipt Date: 20221129
  Transmission Date: 20230113
  Serious: Yes (Life-Threatening, Hospitalization)
  Sender: FDA-Public Use
  Company Number: None

PATIENT
  Age: 61 Year
  Sex: Female
  Weight: 79 kg

DRUGS (2)
  1. BEBTELOVIMAB [Suspect]
     Active Substance: BEBTELOVIMAB
     Indication: SARS-CoV-2 test positive
     Dosage: OTHER FREQUENCY : ONCE;?
     Route: 042
     Dates: start: 20221117, end: 20221117
  2. SODIUM CHLORIDE [Concomitant]
     Active Substance: SODIUM CHLORIDE
     Dates: start: 20221117, end: 20221117

REACTIONS (2)
  - Unresponsive to stimuli [None]
  - Seizure [None]

NARRATIVE: CASE EVENT DATE: 20221117
